FAERS Safety Report 15901691 (Version 1)
Quarter: 2019Q1

REPORT INFORMATION
  Report Type: Spontaneous
  Country: US (occurrence: US)
  Receive Date: 20190201
  Receipt Date: 20190201
  Transmission Date: 20190417
  Serious: Yes (Life-Threatening, Disabling)
  Sender: FDA-Public Use
  Company Number: None

PATIENT
  Age: 68 Year
  Sex: Female
  Weight: 92.6 kg

DRUGS (1)
  1. WARFARIN [Suspect]
     Active Substance: WARFARIN
     Indication: DEEP VEIN THROMBOSIS
     Route: 048
     Dates: start: 20190117, end: 20190124

REACTIONS (6)
  - International normalised ratio increased [None]
  - Necrosis [None]
  - Peripheral coldness [None]
  - Thrombosis [None]
  - Pain in extremity [None]
  - Platelet count decreased [None]

NARRATIVE: CASE EVENT DATE: 20190124
